FAERS Safety Report 7950103-X (Version None)
Quarter: 2011Q4

REPORT INFORMATION
  Report Type: 
  Country: None (occurrence: None)
  Receive Date: 20111130
  Receipt Date: 20111123
  Transmission Date: 20120403
  Serious: Yes (Other)
  Sender: FDA-Public Use
  Company Number: US-ABBOTT-11P-163-0876063-00

PATIENT
  Sex: Female
  Weight: 92.616 kg

DRUGS (4)
  1. HUMIRA [Suspect]
     Dates: start: 20110601
  2. LEFLUNOMIDE [Concomitant]
     Indication: UVEITIS
     Dates: end: 20111121
  3. HUMIRA [Suspect]
     Indication: RHEUMATOID ARTHRITIS
     Dates: start: 20070101
  4. ENBREL [Suspect]
     Indication: PRODUCT USED FOR UNKNOWN INDICATION

REACTIONS (7)
  - VISUAL IMPAIRMENT [None]
  - OCULAR HYPERAEMIA [None]
  - INTRAOCULAR PRESSURE INCREASED [None]
  - DRUG INEFFECTIVE [None]
  - WEIGHT INCREASED [None]
  - GLAUCOMA [None]
  - UVEITIS [None]
